FAERS Safety Report 13443864 (Version 1)
Quarter: 2017Q2

REPORT INFORMATION
  Report Type: Spontaneous
  Country: US (occurrence: US)
  Receive Date: 20170414
  Receipt Date: 20170414
  Transmission Date: 20170830
  Serious: No
  Sender: FDA-Public Use
  Company Number: US-NOVOPROD-533680

PATIENT
  Age: 70 Year
  Sex: Female

DRUGS (2)
  1. TRESIBA [Suspect]
     Active Substance: INSULIN DEGLUDEC
     Indication: GLYCOSYLATED HAEMOGLOBIN INCREASED
  2. TRESIBA [Suspect]
     Active Substance: INSULIN DEGLUDEC
     Indication: TYPE 2 DIABETES MELLITUS
     Dosage: 10 UNK, UNK
     Route: 058

REACTIONS (1)
  - Viral upper respiratory tract infection [Unknown]

NARRATIVE: CASE EVENT DATE: 201702
